FAERS Safety Report 8111829-0 (Version None)
Quarter: 2012Q1

REPORT INFORMATION
  Report Type: 
  Country: None (occurrence: None)
  Receive Date: 20120202
  Receipt Date: 20120202
  Transmission Date: 20120608
  Serious: Yes (Life-Threatening, Hospitalization, Disabling)
  Sender: FDA-Public Use
  Company Number: None

PATIENT
  Age: 78 Year
  Sex: Male
  Weight: 36.2878 kg

DRUGS (1)
  1. NAMENDA [Suspect]
     Indication: DEMENTIA
     Dosage: 10 MG 2X
     Dates: start: 20111101, end: 20111219

REACTIONS (6)
  - LOSS OF CONSCIOUSNESS [None]
  - AMNESIA [None]
  - AFFECTIVE DISORDER [None]
  - BALANCE DISORDER [None]
  - CONVULSION [None]
  - APHASIA [None]
